FAERS Safety Report 13589686 (Version 1)
Quarter: 2017Q2

REPORT INFORMATION
  Report Type: Spontaneous
  Country: US (occurrence: US)
  Receive Date: 20170527
  Receipt Date: 20170527
  Transmission Date: 20170830
  Serious: Yes (Other)
  Sender: FDA-Public Use
  Company Number: None

PATIENT
  Age: 58 Year
  Sex: Female

DRUGS (3)
  1. GLYBURIDE. [Suspect]
     Active Substance: GLYBURIDE
     Route: 048
     Dates: start: 20170412, end: 20170425
  2. METFORMIN [Concomitant]
     Active Substance: METFORMIN HYDROCHLORIDE
  3. LEVOTHYROXINE. [Concomitant]
     Active Substance: LEVOTHYROXINE

REACTIONS (6)
  - Blood glucose abnormal [None]
  - Tremor [None]
  - Therapy change [None]
  - Dizziness [None]
  - Fatigue [None]
  - Impaired driving ability [None]

NARRATIVE: CASE EVENT DATE: 20170425
